FAERS Safety Report 10511985 (Version 1)
Quarter: 2014Q4

REPORT INFORMATION
  Report Type: Spontaneous
  Country: US (occurrence: CA)
  Receive Date: 20141010
  Receipt Date: 20141010
  Transmission Date: 20150528
  Serious: No
  Sender: FDA-Public Use
  Company Number: CA-FRI-1000071311

PATIENT
  Sex: Female

DRUGS (2)
  1. SAPHRIS [Suspect]
     Active Substance: ASENAPINE MALEATE
  2. VALIUM [Concomitant]
     Active Substance: DIAZEPAM

REACTIONS (7)
  - Body temperature increased [Unknown]
  - Mobility decreased [Unknown]
  - Respiratory rate increased [Unknown]
  - Dyspnoea [Unknown]
  - Hypotension [Unknown]
  - Pruritus [Unknown]
  - Agitation [Unknown]
